FAERS Safety Report 7301830-9 (Version None)
Quarter: 2011Q1

REPORT INFORMATION
  Report Type: 
  Country: None (occurrence: None)
  Receive Date: 20110218
  Receipt Date: 20110211
  Transmission Date: 20110831
  Serious: Yes (Hospitalization)
  Sender: FDA-Public Use
  Company Number: B0700583A

PATIENT
  Age: 70 Year
  Sex: Female

DRUGS (1)
  1. AVANDIA [Suspect]
     Indication: DIABETES MELLITUS
     Dosage: 4MG THREE TIMES PER DAY
     Route: 048
     Dates: start: 19991201, end: 20061201

REACTIONS (4)
  - MYOCARDIAL INFARCTION [None]
  - STENT PLACEMENT [None]
  - ARRHYTHMIA [None]
  - HYPERTENSION [None]
